FAERS Safety Report 5917301-8 (Version None)
Quarter: 2008Q4

REPORT INFORMATION
  Report Type: 
  Country: None (occurrence: None)
  Receive Date: 20081014
  Receipt Date: 20081002
  Transmission Date: 20090506
  Serious: Yes (Hospitalization)
  Sender: FDA-Public Use
  Company Number: JP-AMGEN-US214951

PATIENT
  Sex: Female
  Weight: 48 kg

DRUGS (15)
  1. ENBREL [Suspect]
     Indication: RHEUMATOID ARTHRITIS
     Route: 058
     Dates: start: 20061208, end: 20070207
  2. DIGOSIN [Concomitant]
     Indication: ATRIAL FIBRILLATION
     Route: 048
  3. PREDONINE [Concomitant]
  4. PL [Concomitant]
  5. FERROMIA [Concomitant]
     Indication: ANAEMIA
     Route: 048
  6. DICLOFENAC SODIUM [Concomitant]
     Indication: RHEUMATOID ARTHRITIS
     Route: 054
  7. RESPLEN [Concomitant]
     Indication: NASOPHARYNGITIS
     Route: 048
     Dates: start: 20070110, end: 20070120
  8. AZITHROMYCIN [Concomitant]
     Indication: NASOPHARYNGITIS
     Route: 048
     Dates: start: 20070110, end: 20070112
  9. ALESION [Concomitant]
     Indication: RHINITIS
     Route: 048
  10. MUCOSOLVAN [Concomitant]
     Indication: RHINITIS
     Route: 048
  11. MEDICON [Concomitant]
     Indication: UPPER RESPIRATORY TRACT INFLAMMATION
     Dates: start: 20061227, end: 20070103
  12. DASEN [Concomitant]
     Indication: UPPER RESPIRATORY TRACT INFLAMMATION
     Route: 048
     Dates: start: 20061227, end: 20070103
  13. CEFDINIR [Concomitant]
     Indication: UPPER RESPIRATORY TRACT INFLAMMATION
     Route: 048
     Dates: start: 20061227, end: 20070103
  14. CLARITHROMYCIN [Concomitant]
     Route: 048
     Dates: start: 20061220, end: 20061227
  15. CYTOTEC [Concomitant]
     Indication: GASTRITIS
     Route: 048

REACTIONS (3)
  - CELLULITIS [None]
  - SYSTEMIC LUPUS ERYTHEMATOSUS [None]
  - WHITE BLOOD CELL COUNT DECREASED [None]
